FAERS Safety Report 4297740-4 (Version None)
Quarter: 2004Q1

REPORT INFORMATION
  Report Type: 
  Country: None (occurrence: None)
  Receive Date: 20040213
  Receipt Date: 20040204
  Transmission Date: 20041129
  Serious: Yes (Death, Life-Threatening, Hospitalization, Other)
  Sender: FDA-Public Use
  Company Number: 1999-08-1073

PATIENT
  Age: 33 Year
  Sex: Female

DRUGS (1)
  1. TEMOZOLOMIDE CAPSULES [Suspect]
     Indication: GLIOMA
     Dosage: 300 MG QD ORAL
     Route: 048
     Dates: start: 19970624, end: 19980519

REACTIONS (9)
  - ACUTE LEUKAEMIA [None]
  - BRAIN OEDEMA [None]
  - CEREBRAL HAEMORRHAGE [None]
  - FEELING ABNORMAL [None]
  - PAIN [None]
  - PYREXIA [None]
  - RESPIRATORY DISTRESS [None]
  - THROMBOCYTOPENIA [None]
  - VOMITING [None]
